APPROVED DRUG PRODUCT: GANCICLOVIR
Active Ingredient: GANCICLOVIR
Strength: 500MG
Dosage Form/Route: CAPSULE;ORAL
Application: A076457 | Product #002
Applicant: RANBAXY LABORATORIES LTD
Approved: Jun 27, 2003 | RLD: No | RS: No | Type: DISCN